FAERS Safety Report 8351885-8 (Version None)
Quarter: 2012Q2

REPORT INFORMATION
  Report Type: 
  Country: None (occurrence: None)
  Receive Date: 20120511
  Receipt Date: 20120508
  Transmission Date: 20120825
  Serious: No
  Sender: FDA-Public Use
  Company Number: US-PFIZER INC-2012112276

PATIENT
  Sex: Male

DRUGS (5)
  1. SUTENT [Suspect]
     Dosage: 25 MG, 1X/DAY
     Dates: start: 20120228
  2. SUTENT [Suspect]
     Dosage: 12.5 MG, 2X/DAY
     Dates: start: 20120307
  3. SUTENT [Suspect]
     Dosage: 37.5 MG, 1X/DAY
     Dates: start: 20120310
  4. SUTENT [Suspect]
     Dosage: 50 MG, EVERY OTHER DAY
     Dates: start: 20120211
  5. SUTENT [Suspect]
     Dosage: 50 MG, 1X/DAY
     Dates: start: 20120201, end: 20120206

REACTIONS (1)
  - DIARRHOEA [None]
